FAERS Safety Report 6073367-9 (Version None)
Quarter: 2009Q1

REPORT INFORMATION
  Report Type: 
  Country: None (occurrence: None)
  Receive Date: 20090211
  Receipt Date: 20090130
  Transmission Date: 20090719
  Serious: Yes (Other)
  Sender: FDA-Public Use
  Company Number: CA-ROCHE-611762

PATIENT
  Age: 72 Year
  Sex: Female
  Weight: 59 kg

DRUGS (6)
  1. XELODA [Suspect]
     Indication: DRUG USE FOR UNKNOWN INDICATION
     Route: 048
  2. MONOPRIL [Concomitant]
  3. HALOPERIDOL [Concomitant]
  4. XANAX [Concomitant]
  5. SENOKOT [Concomitant]
  6. DOCUSATE CALCIUM [Concomitant]

REACTIONS (4)
  - DEAFNESS [None]
  - EAR DISORDER [None]
  - HYPERACUSIS [None]
  - VERTIGO [None]
